FAERS Safety Report 8457722-5 (Version None)
Quarter: 2012Q2

REPORT INFORMATION
  Report Type: 
  Country: None (occurrence: None)
  Receive Date: 20120618
  Receipt Date: 20120618
  Transmission Date: 20120825
  Serious: Yes (Other)
  Sender: FDA-Public Use
  Company Number: None

PATIENT
  Age: 63 Year
  Sex: Male
  Weight: 102.0593 kg

DRUGS (1)
  1. TEKTURNA [Suspect]
     Indication: BLOOD PRESSURE INCREASED
     Dosage: I PILL PER DAY PO
     Route: 048
     Dates: start: 20111101, end: 20120201

REACTIONS (2)
  - FEELING ABNORMAL [None]
  - DYSPNOEA [None]
